FAERS Safety Report 11626431 (Version 1)
Quarter: 2015Q4

REPORT INFORMATION
  Report Type: Spontaneous
  Country: US (occurrence: US)
  Receive Date: 20151013
  Receipt Date: 20151013
  Transmission Date: 20160304
  Serious: No
  Sender: FDA-Public Use
  Company Number: US-ROCHE-1477864

PATIENT

DRUGS (21)
  1. PROVENTIL HFA [Concomitant]
     Active Substance: ALBUTEROL SULFATE
     Dosage: INHALE 2 PUFFS INTO THE LUNGS EVERY 6 HOURS AS NEEDED FOR WHEEZING (USE WITH SPACER)
     Route: 065
  2. ASPIRIN. [Concomitant]
     Active Substance: ASPIRIN
     Route: 048
  3. SYMBICORT [Concomitant]
     Active Substance: BUDESONIDE\FORMOTEROL FUMARATE DIHYDRATE
     Dosage: 160-4.5 MCG. INHALE 2 PUFFS INTO THE LUNGS TWICE A DAILY. RINSE MOUTH AFTER EACH USE.
     Route: 065
  4. SINEMET [Concomitant]
     Active Substance: CARBIDOPA\LEVODOPA
     Dosage: 25-100 MG PER TABLET. TAKE 1 TABLET BY MOUTH 3TIMES A DAY
     Route: 065
  5. ADVAIR HFA [Concomitant]
     Active Substance: FLUTICASONE PROPIONATE\SALMETEROL XINAFOATE
     Dosage: 250-50MCG/DOSE. INHALE 1 PUFF INTO THE LUNGS 2TIMES DAILY
     Route: 065
  6. MISOPROSTOL. [Concomitant]
     Active Substance: MISOPROSTOL
     Route: 048
  7. K-DUR [Concomitant]
     Active Substance: POTASSIUM CHLORIDE
     Route: 048
  8. COREG [Concomitant]
     Active Substance: CARVEDILOL
     Dosage: TAKE 1 TABLET BY MOUTH 2 TIMES A DAY WITH MEALS
     Route: 065
  9. LASIX [Concomitant]
     Active Substance: FUROSEMIDE
     Route: 048
  10. PROAIR HFA [Concomitant]
     Active Substance: ALBUTEROL SULFATE
     Dosage: INHALE 2 PUFFS INTO LUNGS. EVERY 4-6 HOURS AS  NEEDED. USE WITH SPACER.
     Route: 065
  11. XANAX [Concomitant]
     Active Substance: ALPRAZOLAM
     Dosage: TAKE 1 MG BY MOUTH AT BEDTIME AS NEEDED
     Route: 048
  12. WELLBUTRIN [Concomitant]
     Active Substance: BUPROPION HYDROCHLORIDE
     Route: 065
  13. LEXAPRO [Concomitant]
     Active Substance: ESCITALOPRAM OXALATE
     Route: 048
  14. PRINIVIL [Concomitant]
     Active Substance: LISINOPRIL
     Route: 048
  15. REVATIO [Concomitant]
     Active Substance: SILDENAFIL CITRATE
     Dosage: AVOID USE WITH NITRATES
     Route: 048
  16. NAPROSYN [Suspect]
     Active Substance: NAPROXEN
     Indication: PRODUCT USED FOR UNKNOWN INDICATION
     Route: 065
  17. ULTRAM [Concomitant]
     Active Substance: TRAMADOL HYDROCHLORIDE
     Indication: PAIN
     Route: 048
  18. PROTONIX (PANTOPRAZOLE SODIUM) [Concomitant]
     Route: 048
  19. SEROQUEL [Concomitant]
     Active Substance: QUETIAPINE FUMARATE
     Dosage: AT BEDTIME
     Route: 048
  20. SPIRIVA [Concomitant]
     Active Substance: TIOTROPIUM BROMIDE MONOHYDRATE
     Dosage: TAKE 1 CAPSULE IN LUNGS DAILY
     Route: 065
  21. VITAMIN D3 [Concomitant]
     Active Substance: CHOLECALCIFEROL
     Dosage: 2000 UNIT CAP. 1 CAPSULE DAILY
     Route: 065

REACTIONS (1)
  - Dizziness [Unknown]
